FAERS Safety Report 6700268-2 (Version None)
Quarter: 2010Q2

REPORT INFORMATION
  Report Type: 
  Country: None (occurrence: None)
  Receive Date: 20100428
  Receipt Date: 20100416
  Transmission Date: 20101027
  Serious: Yes (Hospitalization)
  Sender: FDA-Public Use
  Company Number: RU-SANOFI-AVENTIS-2010SA022037

PATIENT
  Age: 72 Year
  Sex: Male
  Weight: 79 kg

DRUGS (2)
  1. TRENTAL [Suspect]
     Indication: ANGIOPATHY
     Dosage: DOSE:1 UNIT(S)
     Route: 048
     Dates: start: 20100406
  2. DIROTON [Concomitant]
     Indication: HYPERTENSION
     Dates: start: 20091215

REACTIONS (3)
  - ANGIOEDEMA [None]
  - PERIORBITAL OEDEMA [None]
  - URTICARIA [None]
